FAERS Safety Report 12891387 (Version 4)
Quarter: 2017Q1

REPORT INFORMATION
  Report Type: Report from Study
  Country: None (occurrence: JP)
  Receive Date: 20161028
  Receipt Date: 20170307
  Transmission Date: 20170428
  Serious: Yes (Hospitalization, Other)
  Sender: FDA-Public Use
  Company Number: JP-ABBVIE-16K-087-1759907-00

PATIENT
  Age: 71 Year
  Sex: Female
  Weight: 74.3 kg

DRUGS (12)
  1. PREDNISOLONE. [Concomitant]
     Active Substance: PREDNISOLONE
     Indication: TUBULOINTERSTITIAL NEPHRITIS
     Route: 048
     Dates: start: 20141023
  2. PREDNISOLONE. [Concomitant]
     Active Substance: PREDNISOLONE
     Indication: RHEUMATOID ARTHRITIS
     Route: 048
     Dates: start: 20131213
  3. PREDNISOLONE. [Concomitant]
     Active Substance: PREDNISOLONE
     Route: 048
     Dates: start: 2014
  4. METOLATE [Suspect]
     Active Substance: METHOTREXATE
     Indication: RHEUMATOID ARTHRITIS
     Route: 065
     Dates: start: 20130626, end: 20140403
  5. HUMIRA [Suspect]
     Active Substance: ADALIMUMAB
     Indication: RHEUMATOID ARTHRITIS
     Route: 058
     Dates: start: 20130417, end: 20140822
  6. LANSOPRAZOLE. [Concomitant]
     Active Substance: LANSOPRAZOLE
     Indication: PROPHYLAXIS
     Route: 048
     Dates: end: 20140903
  7. FOLIC ACID. [Concomitant]
     Active Substance: FOLIC ACID
     Indication: VITAMIN SUPPLEMENTATION
     Dosage: 5 MG/WEEK
     Route: 048
     Dates: end: 20140822
  8. METOLATE [Suspect]
     Active Substance: METHOTREXATE
     Route: 065
     Dates: start: 20140404, end: 20140903
  9. RHEUMATREX [Suspect]
     Active Substance: METHOTREXATE SODIUM
     Indication: PRODUCT USED FOR UNKNOWN INDICATION
     Dosage: 10 MG/WEEK
     Route: 065
     Dates: start: 20130626, end: 20140403
  10. RHEUMATREX [Suspect]
     Active Substance: METHOTREXATE SODIUM
     Dosage: 8 MG/WEEK
     Route: 065
     Dates: start: 20140404, end: 20140822
  11. LANSOPRAZOLE. [Concomitant]
     Active Substance: LANSOPRAZOLE
     Indication: ADVERSE DRUG REACTION
  12. CELECOXIB. [Concomitant]
     Active Substance: CELECOXIB
     Indication: RHEUMATOID ARTHRITIS
     Route: 048
     Dates: end: 20140903

REACTIONS (3)
  - Abdominal discomfort [Recovered/Resolved]
  - Tubulointerstitial nephritis and uveitis syndrome [Recovering/Resolving]
  - Pancytopenia [Recovered/Resolved]

NARRATIVE: CASE EVENT DATE: 20140401
